FAERS Safety Report 20883414 (Version 1)
Quarter: 2022Q2

REPORT INFORMATION
  Report Type: Spontaneous
  Country: CN (occurrence: None)
  Receive Date: 20220527
  Receipt Date: 20220527
  Transmission Date: 20220721
  Serious: Yes (Other)
  Sender: FDA-Public Use
  Company Number: CN-ROCHE-3104191

PATIENT
  Age: 86 Year
  Sex: Female

DRUGS (15)
  1. TRASTUZUMAB [Suspect]
     Active Substance: TRASTUZUMAB
     Indication: Invasive ductal breast carcinoma
     Route: 065
     Dates: start: 201611
  2. TRASTUZUMAB [Suspect]
     Active Substance: TRASTUZUMAB
     Route: 065
     Dates: start: 201707, end: 202009
  3. CAPECITABINE [Suspect]
     Active Substance: CAPECITABINE
     Indication: Invasive ductal breast carcinoma
     Dosage: 2 TABLET IN THE MORNING AND 1 TABLET IN THE EVENING,  START DATE. /DEC/2021
     Route: 048
     Dates: start: 201302
  4. CAPECITABINE [Suspect]
     Active Substance: CAPECITABINE
     Dosage: 1 TABLET IN THE MORNING AND 1 TABLET IN THE EVENING
     Route: 048
     Dates: start: 202112
  5. PYROTINIB [Suspect]
     Active Substance: PYROTINIB
     Indication: Invasive ductal breast carcinoma
     Route: 065
  6. PYROTINIB [Suspect]
     Active Substance: PYROTINIB
     Route: 065
  7. PYROTINIB [Suspect]
     Active Substance: PYROTINIB
     Route: 065
     Dates: start: 202112
  8. PACLITAXEL [Concomitant]
     Active Substance: PACLITAXEL
     Indication: Invasive ductal breast carcinoma
  9. PIRARUBICIN [Concomitant]
     Active Substance: PIRARUBICIN
     Indication: Invasive ductal breast carcinoma
  10. PACLITAXEL [Concomitant]
     Active Substance: PACLITAXEL
     Indication: Invasive ductal breast carcinoma
     Dates: start: 201611
  11. CYCLOPHOSPHAMIDE [Concomitant]
     Active Substance: CYCLOPHOSPHAMIDE
     Indication: Invasive ductal breast carcinoma
     Dates: start: 201707, end: 202004
  12. ZOLEDRONIC ACID [Concomitant]
     Active Substance: ZOLEDRONIC ACID
     Indication: Invasive ductal breast carcinoma
     Dosage: IRREGULAR, ONCE IN 2-4 MONTH
     Dates: start: 201707, end: 202009
  13. VINORELBINE [Concomitant]
     Active Substance: VINORELBINE TARTRATE
     Indication: Invasive ductal breast carcinoma
     Dates: start: 202203
  14. INVESTIGATIONAL PRODUCT [Concomitant]
     Active Substance: INVESTIGATIONAL PRODUCT
     Indication: Invasive ductal breast carcinoma
     Dates: start: 202203
  15. LETROZOLE [Concomitant]
     Active Substance: LETROZOLE
     Indication: Invasive ductal breast carcinoma
     Dates: start: 201609, end: 201611

REACTIONS (4)
  - Palmar-plantar erythrodysaesthesia syndrome [Unknown]
  - Diarrhoea [Unknown]
  - Platelet count decreased [Unknown]
  - Myelosuppression [Unknown]
